FAERS Safety Report 6016531-7 (Version None)
Quarter: 2008Q4

REPORT INFORMATION
  Report Type: 
  Country: None (occurrence: None)
  Receive Date: 20081222
  Receipt Date: 20081209
  Transmission Date: 20090506
  Serious: Yes (Other)
  Sender: FDA-Public Use
  Company Number: US-PFIZER INC-2008086978

PATIENT
  Sex: Female
  Weight: 80.454 kg

DRUGS (4)
  1. CHANTIX [Suspect]
     Dosage: UNK
     Dates: start: 20080907
  2. ALCOHOL [Interacting]
     Dates: start: 20081004
  3. LEXAPRO [Concomitant]
     Indication: DEPRESSION
  4. VITAMIN D [Concomitant]

REACTIONS (5)
  - CONSTIPATION [None]
  - DRUG INTERACTION [None]
  - LOSS OF CONSCIOUSNESS [None]
  - MEMORY IMPAIRMENT [None]
  - NIGHTMARE [None]
